FAERS Safety Report 6964702-5 (Version None)
Quarter: 2010Q3

REPORT INFORMATION
  Report Type: 
  Country: None (occurrence: None)
  Receive Date: 20100831
  Receipt Date: 20100819
  Transmission Date: 20110219
  Serious: Yes (Hospitalization)
  Sender: FDA-Public Use
  Company Number: WAES 1007USA01099

PATIENT
  Age: 45 Year
  Sex: Female

DRUGS (9)
  1. CAP VORINOSTAT [Suspect]
     Indication: MULTIPLE MYELOMA
     Dosage: 400 MG/DAILY PO
     Route: 048
     Dates: start: 20100401, end: 20100704
  2. BORTEZOMIB [Suspect]
     Indication: MULTIPLE MYELOMA
     Dosage: 2.0 MG/DAILY IV
     Route: 042
     Dates: start: 20100401, end: 20100701
  3. DECADRON [Suspect]
     Dosage: 80 MG/ PO
     Route: 048
     Dates: start: 20100727
  4. ONDANSETRON [Suspect]
     Dosage: 8 MG IV
     Route: 042
     Dates: start: 20100727
  5. CISPLATIN [Suspect]
     Dosage: 20 MG IV
     Route: 042
     Dates: start: 20100727
  6. DOXORUBICIN HCL [Suspect]
     Dosage: 20 MG IV
     Route: 042
     Dates: start: 20100727
  7. CYCLOPHOSPHAMIDE [Suspect]
     Dosage: 800 MG IV
     Route: 042
     Dates: start: 20100727
  8. ETOPOSIDE [Suspect]
     Dosage: 80 MG IV
     Route: 042
     Dates: start: 20100727
  9. THALIDOMIDE [Suspect]
     Dosage: 400 MG PO
     Route: 048
     Dates: start: 20100727

REACTIONS (10)
  - BRONCHOPNEUMONIA [None]
  - CHEST PAIN [None]
  - DIARRHOEA [None]
  - ELECTROLYTE IMBALANCE [None]
  - FEBRILE NEUTROPENIA [None]
  - HAEMOGLOBIN DECREASED [None]
  - MUCOSAL INFLAMMATION [None]
  - OESOPHAGITIS [None]
  - PLATELET COUNT DECREASED [None]
  - WHITE BLOOD CELL COUNT DECREASED [None]
